FAERS Safety Report 18354501 (Version 1)
Quarter: 2020Q4

REPORT INFORMATION
  Report Type: Spontaneous
  Country: US (occurrence: US)
  Receive Date: 20201005
  Receipt Date: 20201005
  Transmission Date: 20210114
  Serious: Yes (Other)
  Sender: FDA-Public Use
  Company Number: None

PATIENT
  Sex: Female

DRUGS (1)
  1. AVONEX [Suspect]
     Active Substance: INTERFERON BETA-1A
     Indication: MULTIPLE SCLEROSIS
     Dosage: ?          OTHER STRENGTH:30/0.5 UG/ML;?
     Route: 030
     Dates: start: 201202

REACTIONS (8)
  - Diarrhoea [None]
  - Headache [None]
  - Pain [None]
  - Cough [None]
  - Fatigue [None]
  - Dyspnoea [None]
  - Disorientation [None]
  - Disturbance in attention [None]
